FAERS Safety Report 8359503-X (Version None)
Quarter: 2012Q2

REPORT INFORMATION
  Report Type: 
  Country: None (occurrence: None)
  Receive Date: 20120515
  Receipt Date: 20120507
  Transmission Date: 20120825
  Serious: Yes (Hospitalization)
  Sender: FDA-Public Use
  Company Number: US-BAYER-2011-109313

PATIENT
  Age: 45 Year
  Sex: Female
  Weight: 65.306 kg

DRUGS (9)
  1. IMITREX [Concomitant]
  2. MOTRIN [Concomitant]
  3. YAZ [Suspect]
     Dosage: UNK
     Dates: start: 20090901
  4. ANTIBIOTICS [Concomitant]
  5. YAZ [Suspect]
     Dosage: UNK
     Dates: start: 20090901
  6. TRAZODONE HCL [Concomitant]
     Dosage: 50 MG, QD
  7. LEVAQUIN [Concomitant]
     Indication: ESCHERICHIA URINARY TRACT INFECTION
  8. WELLBUTRIN [Concomitant]
  9. ACETAMINOPHEN [Concomitant]

REACTIONS (5)
  - DEPRESSION [None]
  - MENTAL DISORDER [None]
  - PULMONARY EMBOLISM [None]
  - PAIN [None]
  - BLOOD DISORDER [None]
